FAERS Safety Report 20449158 (Version 1)
Quarter: 2022Q1

REPORT INFORMATION
  Report Type: Spontaneous
  Country: US (occurrence: US)
  Receive Date: 20220209
  Receipt Date: 20220209
  Transmission Date: 20220423
  Serious: No
  Sender: FDA-Public Use
  Company Number: US-SA-SAC20220203000760

PATIENT
  Age: 75 Year
  Sex: Female

DRUGS (5)
  1. DUPIXENT [Suspect]
     Active Substance: DUPILUMAB
     Indication: Dermatitis atopic
     Dosage: 300MG QOW
     Route: 058
     Dates: start: 201708
  2. VITAMIN C [Concomitant]
     Active Substance: ASCORBIC ACID
  3. TRIAMCINOLONE ACETONIDE [Concomitant]
     Active Substance: TRIAMCINOLONE ACETONIDE
  4. CERAVE HEALING [Concomitant]
     Active Substance: PETROLATUM
  5. CETAPHIL [DIMETICONE;GLYCEROL] [Concomitant]

REACTIONS (1)
  - Dermatitis atopic [Recovered/Resolved]

NARRATIVE: CASE EVENT DATE: 20211001
